FAERS Safety Report 6109910-0 (Version None)
Quarter: 2009Q1

REPORT INFORMATION
  Report Type: 
  Country: None (occurrence: None)
  Receive Date: 20090310
  Receipt Date: 20080815
  Transmission Date: 20090719
  Serious: No
  Sender: FDA-Public Use
  Company Number: A0742783A

PATIENT
  Age: 34 Year
  Sex: Male

DRUGS (1)
  1. NICORETTE (MINT) [Suspect]
     Dates: start: 20080813

REACTIONS (3)
  - INTENTIONAL DRUG MISUSE [None]
  - PAIN IN JAW [None]
  - PRODUCT QUALITY ISSUE [None]
